FAERS Safety Report 9719434 (Version 1)
Quarter: 2013Q4

REPORT INFORMATION
  Report Type: Spontaneous
  Country: US (occurrence: US)
  Receive Date: 20131128
  Receipt Date: 20131128
  Transmission Date: 20140711
  Serious: Yes (Death, Hospitalization)
  Sender: FDA-Public Use
  Company Number: US-INDICUS PHARMA-000165

PATIENT
  Age: 33 Year
  Sex: Female

DRUGS (7)
  1. METFORMIN HYDROCHLORIDE [Suspect]
     Route: 048
  2. TRAZODONE [Suspect]
     Route: 048
  3. INSULIN [Suspect]
     Route: 048
  4. PRAVASTATIN [Suspect]
     Route: 048
  5. LISINOPRIL W/HYDROCHLOROTHIAZIDE [Suspect]
     Route: 048
  6. CITALOPRAM [Suspect]
     Route: 048
  7. GLIMEPIRIDE [Suspect]
     Route: 048

REACTIONS (3)
  - Exposure via ingestion [Fatal]
  - Completed suicide [Fatal]
  - Cardio-respiratory arrest [Fatal]
